FAERS Safety Report 12421582 (Version 2)
Quarter: 2016Q3

REPORT INFORMATION
  Report Type: Report from Study
  Country: DE (occurrence: DE)
  Receive Date: 20160531
  Receipt Date: 20160825
  Transmission Date: 20161109
  Serious: Yes (Other)
  Sender: FDA-Public Use
  Company Number: DE-BRISTOL-MYERS SQUIBB COMPANY-BMS-2016-041896

PATIENT

DRUGS (1)
  1. APIXABAN [Suspect]
     Active Substance: APIXABAN
     Indication: PRODUCT USED FOR UNKNOWN INDICATION
     Dosage: UNK
     Route: 065

REACTIONS (6)
  - Sinus node dysfunction [Unknown]
  - Sinoatrial block [Unknown]
  - Fall [Unknown]
  - Haematoma [Unknown]
  - Cardiac pacemaker insertion [Unknown]
  - Hand fracture [Unknown]

NARRATIVE: CASE EVENT DATE: 20160407
